FAERS Safety Report 8827410 (Version 1)
Quarter: 2012Q4

REPORT INFORMATION
  Report Type: 
  Country: US (occurrence: US)
  Receive Date: 20121005
  Receipt Date: 20121005
  Transmission Date: 20130627
  Serious: No
  Sender: FDA-Public Use
  Company Number: US-BRISTOL-MYERS SQUIBB COMPANY-16507493

PATIENT
  Age: 58 Year
  Sex: Female
  Weight: 61 kg

DRUGS (3)
  1. AVAPRO [Suspect]
     Dates: start: 200502
  2. HYDROCHLOROTHIAZIDE [Suspect]
     Indication: SWELLING
  3. BABY ASPIRIN [Concomitant]

REACTIONS (3)
  - Swelling [Unknown]
  - Hypotension [Unknown]
  - Lethargy [Unknown]
